FAERS Safety Report 9266005 (Version 1)
Quarter: 2013Q2

REPORT INFORMATION
  Report Type: Spontaneous
  Country: US (occurrence: US)
  Receive Date: 20130501
  Receipt Date: 20130501
  Transmission Date: 20140414
  Serious: No
  Sender: FDA-Public Use
  Company Number: US-009507513-1304USA017512

PATIENT
  Sex: Female

DRUGS (10)
  1. VITAMIN D (UNSPECIFIED) [Concomitant]
  2. CYANOCOBALAMIN [Concomitant]
  3. VICTRELIS [Suspect]
     Indication: HEPATITIS C
     Dosage: 800 MG, Q8H
     Route: 048
  4. PEGASYS [Suspect]
  5. RIBASPHERE [Suspect]
  6. ATENOLOL [Concomitant]
  7. LORAZEPAM [Concomitant]
  8. LEVOTHYROXINE SODIUM [Concomitant]
  9. TYLENOL EXTRA STRENGTH [Concomitant]
     Dosage: UNK, PRN
  10. LEXAPRO [Concomitant]

REACTIONS (2)
  - Pain [Not Recovered/Not Resolved]
  - Fatigue [Not Recovered/Not Resolved]
